FAERS Safety Report 7791436-X (Version None)
Quarter: 2011Q4

REPORT INFORMATION
  Report Type: 
  Country: None (occurrence: None)
  Receive Date: 20111003
  Receipt Date: 20110922
  Transmission Date: 20120403
  Serious: No
  Sender: FDA-Public Use
  Company Number: JP-JNJFOC-20110911120

PATIENT

DRUGS (1)
  1. FENTANYL-100 [Suspect]
     Indication: PRODUCT USED FOR UNKNOWN INDICATION
     Dosage: ONE AND A HALF PATCHES OF FENTANYL (MATRIX PATCH) 12.5 MCG/HR
     Route: 062

REACTIONS (1)
  - DRUG PRESCRIBING ERROR [None]
